FAERS Safety Report 10889316 (Version 3)
Quarter: 2015Q2

REPORT INFORMATION
  Report Type: Spontaneous
  Country: US (occurrence: US)
  Receive Date: 20150305
  Receipt Date: 20150521
  Transmission Date: 20150821
  Serious: Yes (Death, Life-Threatening, Hospitalization, Disabling, Other)
  Sender: FDA-Public Use
  Company Number: US-009507513-1503USA002076

PATIENT
  Sex: Male
  Weight: 126.98 kg

DRUGS (6)
  1. BYDUREON [Suspect]
     Active Substance: EXENATIDE
     Dosage: UNK
     Dates: start: 201210, end: 201301
  2. BYETTA [Suspect]
     Active Substance: EXENATIDE
     Indication: TYPE 2 DIABETES MELLITUS
     Dosage: 10 MICROGRAM, BID
     Dates: start: 20070305, end: 20100718
  3. VICTOZA [Suspect]
     Active Substance: LIRAGLUTIDE
     Indication: TYPE 2 DIABETES MELLITUS
     Dosage: 18 MICROGRAM, QD
     Dates: start: 20120525, end: 20121008
  4. JANUVIA [Suspect]
     Active Substance: SITAGLIPTIN PHOSPHATE
     Indication: TYPE 2 DIABETES MELLITUS
     Dosage: 100 MG, QD
     Route: 048
     Dates: start: 20080715, end: 20090317
  5. JANUMET [Suspect]
     Active Substance: METFORMIN HYDROCHLORIDE\SITAGLIPTIN PHOSPHATE
     Indication: TYPE 2 DIABETES MELLITUS
     Dosage: 50-1000 MG, BID
     Route: 048
     Dates: start: 20090505, end: 20110819
  6. KOMBOGLYZE [Suspect]
     Active Substance: METFORMIN HYDROCHLORIDE\SAXAGLIPTIN
     Indication: TYPE 2 DIABETES MELLITUS
     Dosage: 5/1000 TWICE DAILY
     Dates: start: 20120710, end: 20121010

REACTIONS (12)
  - Cholecystectomy [Unknown]
  - Hypercholesterolaemia [Unknown]
  - Hypertension [Unknown]
  - Bile duct stone [Unknown]
  - Adenocarcinoma pancreas [Fatal]
  - Urinary tract infection [Unknown]
  - Insulin-requiring type 2 diabetes mellitus [Unknown]
  - Blood triglycerides increased [Unknown]
  - Constipation [Unknown]
  - Spinal laminectomy [Unknown]
  - Pancreatitis acute [Unknown]
  - Radiotherapy [Unknown]

NARRATIVE: CASE EVENT DATE: 2008
